FAERS Safety Report 6577441-X (Version None)
Quarter: 2010Q1

REPORT INFORMATION
  Report Type: 
  Country: None (occurrence: None)
  Receive Date: 20100211
  Receipt Date: 20100205
  Transmission Date: 20100710
  Serious: Yes (Death)
  Sender: FDA-Public Use
  Company Number: RU-CELGENEUS-251-20785-09031559

PATIENT
  Sex: Male
  Weight: 109 kg

DRUGS (8)
  1. THALIDOMIDE [Suspect]
     Indication: MULTIPLE MYELOMA
     Route: 048
     Dates: start: 20081211, end: 20090322
  2. ACE-011 [Suspect]
     Indication: MULTIPLE MYELOMA
     Route: 058
     Dates: start: 20081211, end: 20090305
  3. MELPHALAN HYDROCHLORIDE [Suspect]
     Indication: MULTIPLE MYELOMA
     Route: 048
     Dates: start: 20081211, end: 20090211
  4. MELPHALAN HYDROCHLORIDE [Suspect]
     Route: 048
     Dates: start: 20090305, end: 20090311
  5. PREDNISOLONE [Suspect]
     Indication: MULTIPLE MYELOMA
     Route: 048
     Dates: start: 20081211, end: 20090311
  6. RANITIDINE [Concomitant]
     Indication: PROPHYLAXIS
     Route: 048
     Dates: start: 20081211, end: 20090322
  7. ASPIRIN [Concomitant]
     Indication: THROMBOSIS PROPHYLAXIS
     Route: 048
     Dates: start: 20050601, end: 20090322
  8. ENALAPRIL MALEATE [Concomitant]
     Indication: HYPERTENSION
     Route: 048
     Dates: start: 20090322, end: 20090322

REACTIONS (2)
  - MULTIPLE MYELOMA [None]
  - SUDDEN DEATH [None]
